FAERS Safety Report 8620680 (Version 2)
Quarter: 2013Q2

REPORT INFORMATION
  Report Type: Spontaneous
  Country: US (occurrence: US)
  Receive Date: 20120618
  Receipt Date: 20130521
  Transmission Date: 20140414
  Serious: Yes (Other)
  Sender: FDA-Public Use
  Company Number: US-TEVA-335299USA

PATIENT
  Sex: Female
  Weight: 65.83 kg

DRUGS (12)
  1. ACTIQ [Suspect]
     Indication: BACK DISORDER
     Route: 002
  2. ACTIQ [Suspect]
     Indication: NECK INJURY
  3. METHADONE [Suspect]
     Indication: BACK DISORDER
     Route: 048
     Dates: start: 1999
  4. METHADONE [Suspect]
     Indication: NECK INJURY
  5. PREGABALIN [Concomitant]
     Dosage: 75 MILLIGRAM DAILY;
     Route: 048
  6. ESOMEPRAZOLE MAGNESIUM [Concomitant]
     Dosage: 40 MILLIGRAM DAILY;
     Route: 048
  7. LEVOTHYROXINE SODIUM [Concomitant]
     Dosage: .2 MILLIGRAM DAILY;
     Route: 048
  8. ALPRAZOLAM [Concomitant]
     Dosage: 2 MILLIGRAM DAILY;
     Route: 048
  9. ZIPSOR [Concomitant]
     Dosage: 50 MILLIGRAM DAILY;
     Route: 048
  10. BUDESONIDE W/FORMOTEROL FUMARATE [Concomitant]
     Indication: ASTHMA
  11. MONTELUKAST [Concomitant]
     Indication: ASTHMA
     Dosage: 10 MILLIGRAM DAILY;
     Route: 048
  12. SALBUTAMOL [Concomitant]
     Indication: ASTHMA

REACTIONS (5)
  - Withdrawal syndrome [Not Recovered/Not Resolved]
  - Pyrexia [Unknown]
  - Speech disorder [Unknown]
  - Off label use [Unknown]
  - Drug prescribing error [Unknown]
